FAERS Safety Report 24161949 (Version 1)
Quarter: 2024Q3

REPORT INFORMATION
  Report Type: Other
  Country: IN (occurrence: IN)
  Receive Date: 20240801
  Receipt Date: 20240801
  Transmission Date: 20241017
  Serious: Yes (Hospitalization, Other)
  Sender: BIONPHARMA
  Company Number: IN-Bion-013556

PATIENT
  Age: 36 Year
  Sex: Male

DRUGS (2)
  1. VALPROIC ACID [Suspect]
     Active Substance: VALPROIC ACID
     Indication: Mania
     Dosage: 1500MG
  2. CLONAZEPAM [Concomitant]
     Active Substance: CLONAZEPAM
     Indication: Mania
     Dosage: 2MG

REACTIONS (8)
  - Generalised tonic-clonic seizure [Unknown]
  - Irritability [Unknown]
  - Vomiting [Unknown]
  - Ataxia [Unknown]
  - Hyponatraemia [Unknown]
  - Hyperammonaemia [Unknown]
  - Neuroleptic malignant syndrome [Unknown]
  - Cerebellar atrophy [Unknown]
